FAERS Safety Report 24118624 (Version 1)
Quarter: 2024Q3

REPORT INFORMATION
  Report Type: Spontaneous
  Country: IT (occurrence: IT)
  Receive Date: 20240722
  Receipt Date: 20240722
  Transmission Date: 20241016
  Serious: Yes (Other)
  Sender: ACCORD
  Company Number: IT-MLMSERVICE-20240703-PI122035-00101-1

PATIENT
  Age: 48 Year
  Sex: Female

DRUGS (2)
  1. CISPLATIN [Suspect]
     Active Substance: CISPLATIN
     Indication: Lung adenocarcinoma
     Dosage: ADMINISTERED EVERY 21 DAYS, 6 CYCLES
     Dates: start: 202303
  2. PEMETREXED [Suspect]
     Active Substance: PEMETREXED
     Indication: Lung adenocarcinoma
     Dosage: ADMINISTERED EVERY 21 DAYS, 6 CYCLES
     Dates: start: 202303

REACTIONS (3)
  - Thrombocytopenia [Unknown]
  - Anaemia [Unknown]
  - Neutropenia [Unknown]

NARRATIVE: CASE EVENT DATE: 20230101
